FAERS Safety Report 15595819 (Version 2)
Quarter: 2019Q2

REPORT INFORMATION
  Report Type: Report from Study
  Country: US (occurrence: US)
  Receive Date: 20181107
  Receipt Date: 20190410
  Transmission Date: 20190711
  Serious: Yes (Other)
  Sender: FDA-Public Use
  Company Number: US-AMGEN-USASL2018155748

PATIENT
  Age: 48 Year
  Sex: Female

DRUGS (1)
  1. ENBREL [Suspect]
     Active Substance: ETANERCEPT
     Indication: SARCOIDOSIS
     Dosage: 50 MILLIGRAM, QWK
     Route: 065

REACTIONS (8)
  - Injection site erythema [Unknown]
  - Blood test abnormal [Unknown]
  - Spinal disorder [Unknown]
  - Off label use [Unknown]
  - Injection site pain [Recovered/Resolved]
  - Therapeutic response unexpected [Unknown]
  - Impaired healing [Unknown]
  - Cerebrovascular accident [Unknown]
